FAERS Safety Report 12179239 (Version 1)
Quarter: 2016Q1

REPORT INFORMATION
  Report Type: Spontaneous
  Country: CA (occurrence: CA)
  Receive Date: 20160314
  Receipt Date: 20160314
  Transmission Date: 20160526
  Serious: Yes (Other)
  Sender: FDA-Public Use
  Company Number: CA-BAXTER-2016BAX010913

PATIENT
  Age: 21 Year
  Sex: Male

DRUGS (19)
  1. PROPOFOL. [Suspect]
     Active Substance: PROPOFOL
     Indication: MAINTENANCE OF ANAESTHESIA
     Route: 065
  2. FORANE [Suspect]
     Active Substance: ISOFLURANE
     Indication: OFF LABEL USE
  3. PROPOFOL. [Suspect]
     Active Substance: PROPOFOL
     Indication: STATUS EPILEPTICUS
  4. VALPROIC ACID. [Concomitant]
     Active Substance: VALPROIC ACID
     Indication: STATUS EPILEPTICUS
  5. PHENYTOIN. [Concomitant]
     Active Substance: PHENYTOIN
     Indication: MAINTENANCE OF ANAESTHESIA
     Route: 065
  6. PHENOBARBITAL. [Concomitant]
     Active Substance: PHENOBARBITAL
     Indication: MAINTENANCE OF ANAESTHESIA
     Route: 042
  7. LEVETIRACETAM. [Concomitant]
     Active Substance: LEVETIRACETAM
     Indication: STATUS EPILEPTICUS
  8. IMMUNOGLOBULIN [Concomitant]
     Active Substance: HUMAN IMMUNOGLOBULIN G
     Indication: STATUS EPILEPTICUS
     Route: 042
  9. METHYLPREDNISOLONE. [Concomitant]
     Active Substance: METHYLPREDNISOLONE
     Indication: STATUS EPILEPTICUS
     Route: 042
  10. LACOSAMIDE [Concomitant]
     Active Substance: LACOSAMIDE
     Indication: STATUS EPILEPTICUS
  11. FORANE [Suspect]
     Active Substance: ISOFLURANE
     Indication: STATUS EPILEPTICUS
  12. VALPROIC ACID. [Concomitant]
     Active Substance: VALPROIC ACID
     Indication: MAINTENANCE OF ANAESTHESIA
     Route: 065
  13. LEVETIRACETAM. [Concomitant]
     Active Substance: LEVETIRACETAM
     Indication: MAINTENANCE OF ANAESTHESIA
     Route: 065
  14. FORANE [Suspect]
     Active Substance: ISOFLURANE
     Indication: MAINTENANCE OF ANAESTHESIA
     Route: 055
  15. PHENYTOIN. [Concomitant]
     Active Substance: PHENYTOIN
     Indication: STATUS EPILEPTICUS
  16. PHENOBARBITAL. [Concomitant]
     Active Substance: PHENOBARBITAL
     Indication: STATUS EPILEPTICUS
  17. LACOSAMIDE [Concomitant]
     Active Substance: LACOSAMIDE
     Indication: MAINTENANCE OF ANAESTHESIA
     Route: 065
  18. MIDAZOLAM [Suspect]
     Active Substance: MIDAZOLAM\MIDAZOLAM HYDROCHLORIDE
     Indication: MAINTENANCE OF ANAESTHESIA
     Route: 065
  19. MIDAZOLAM [Suspect]
     Active Substance: MIDAZOLAM\MIDAZOLAM HYDROCHLORIDE
     Indication: STATUS EPILEPTICUS

REACTIONS (1)
  - Intestinal ischaemia [Unknown]
